FAERS Safety Report 20205704 (Version 1)
Quarter: 2021Q4

REPORT INFORMATION
  Report Type: Spontaneous
  Country: KW (occurrence: KW)
  Receive Date: 20211220
  Receipt Date: 20211220
  Transmission Date: 20220303
  Serious: Yes (Other)
  Sender: FDA-Public Use
  Company Number: KW-002147023-NVSC2021KW198985

PATIENT
  Age: 84 Year
  Sex: Male

DRUGS (3)
  1. LUCENTIS [Suspect]
     Active Substance: RANIBIZUMAB
     Indication: Product used for unknown indication
     Dosage: UNK, RIGHT EYE
     Route: 050
  2. LUCENTIS [Suspect]
     Active Substance: RANIBIZUMAB
     Dosage: UNK, (RIGHT EYE)
     Route: 050
     Dates: start: 202101
  3. BEOVU [Suspect]
     Active Substance: BROLUCIZUMAB-DBLL
     Indication: Neovascular age-related macular degeneration
     Route: 050
     Dates: start: 20210608

REACTIONS (10)
  - Retinal haemorrhage [Recovering/Resolving]
  - Corneal opacity [Recovering/Resolving]
  - Vitreous opacities [Recovering/Resolving]
  - Vitreous detachment [Recovering/Resolving]
  - Macular oedema [Recovering/Resolving]
  - Optic disc haemorrhage [Recovering/Resolving]
  - Retinal vasculitis [Recovering/Resolving]
  - Dry eye [Recovering/Resolving]
  - Hyperaemia [Recovering/Resolving]
  - Visual acuity reduced [Recovering/Resolving]

NARRATIVE: CASE EVENT DATE: 20210601
